FAERS Safety Report 8624105-4 (Version None)
Quarter: 2012Q3

REPORT INFORMATION
  Report Type: 
  Country: None (occurrence: None)
  Receive Date: 20120827
  Receipt Date: 20120820
  Transmission Date: 20120928
  Serious: Yes (Other)
  Sender: FDA-Public Use
  Company Number: CA-JNJFOC-20120810440

PATIENT
  Sex: Male
  Weight: 87 kg

DRUGS (4)
  1. REMICADE [Suspect]
     Route: 042
     Dates: start: 20120301
  2. REMICADE [Suspect]
     Indication: CROHN'S DISEASE
     Route: 042
     Dates: start: 20120301
  3. PREDNISONE TAB [Concomitant]
     Indication: PREMEDICATION
     Route: 065
  4. ACCOLATE [Concomitant]
     Indication: PREMEDICATION
     Route: 065

REACTIONS (1)
  - WEIGHT DECREASED [None]
